FAERS Safety Report 9305404 (Version 1)
Quarter: 2013Q2

REPORT INFORMATION
  Report Type: Spontaneous
  Country: US (occurrence: US)
  Receive Date: 20130523
  Receipt Date: 20130523
  Transmission Date: 20140414
  Serious: Yes (Hospitalization, Other)
  Sender: FDA-Public Use
  Company Number: PHEH2013US011129

PATIENT
  Sex: Female

DRUGS (4)
  1. DIOVAN HCT [Suspect]
  2. HYDROCHLOROTHIAZIDE,VALSARTAN [Suspect]
     Indication: HYPERTENSION
  3. NORVASC [Concomitant]
  4. VITAMIN B12 [Concomitant]

REACTIONS (3)
  - Gastrointestinal disorder [Unknown]
  - Hypertension [Unknown]
  - Drug ineffective [Unknown]
